FAERS Safety Report 22386723 (Version 1)
Quarter: 2023Q2

REPORT INFORMATION
  Report Type: Spontaneous
  Country: US (occurrence: US)
  Receive Date: 20230531
  Receipt Date: 20230531
  Transmission Date: 20230721
  Serious: Yes (Hospitalization, Other)
  Sender: FDA-Public Use
  Company Number: US-AUROBINDO-AUR-APL-2023-038791

PATIENT
  Age: 59 Year
  Sex: Male

DRUGS (2)
  1. ACETAMINOPHEN [Suspect]
     Active Substance: ACETAMINOPHEN
     Indication: Product used for unknown indication
     Dosage: 100 GRAM
     Route: 065
  2. IBUPROFEN [Suspect]
     Active Substance: IBUPROFEN
     Indication: Product used for unknown indication
     Dosage: 100 GRAM
     Route: 048

REACTIONS (5)
  - Liver injury [Recovered/Resolved]
  - Encephalopathy [Recovered/Resolved]
  - Toxicity to various agents [Recovered/Resolved]
  - Intentional product misuse [Unknown]
  - Intentional overdose [Unknown]
